FAERS Safety Report 6268020-2 (Version None)
Quarter: 2009Q3

REPORT INFORMATION
  Report Type: 
  Country: None (occurrence: None)
  Receive Date: 20090713
  Receipt Date: 20090626
  Transmission Date: 20100115
  Serious: Yes (Hospitalization)
  Sender: FDA-Public Use
  Company Number: DSA_33884_2009

PATIENT
  Sex: Male

DRUGS (6)
  1. XENAZINE [Suspect]
     Indication: TOURETTE'S DISORDER
     Dosage: 25 MG TID), (12.5 MG QD), (DF (INCREASED WEEKLY X 5))
     Dates: start: 20090101, end: 20090301
  2. XENAZINE [Suspect]
     Indication: TOURETTE'S DISORDER
     Dosage: 25 MG TID), (12.5 MG QD), (DF (INCREASED WEEKLY X 5))
     Dates: start: 20090301, end: 20090605
  3. XENAZINE [Suspect]
     Indication: TOURETTE'S DISORDER
     Dosage: 25 MG TID), (12.5 MG QD), (DF (INCREASED WEEKLY X 5))
     Dates: start: 20090201
  4. PROZAC [Concomitant]
  5. SINGULAIR [Concomitant]
  6. ZYRTEC [Concomitant]

REACTIONS (4)
  - BIPOLAR DISORDER [None]
  - SELF-INJURIOUS IDEATION [None]
  - SUICIDAL IDEATION [None]
  - VIOLENCE-RELATED SYMPTOM [None]
